FAERS Safety Report 24694025 (Version 1)
Quarter: 2024Q4

REPORT INFORMATION
  Report Type: Spontaneous
  Country: CN (occurrence: CN)
  Receive Date: 20241204
  Receipt Date: 20241204
  Transmission Date: 20250114
  Serious: Yes (Hospitalization, Other)
  Sender: ROCHE
  Company Number: CN-ROCHE-10000143381

PATIENT
  Sex: Female

DRUGS (12)
  1. TRASTUZUMAB EMTANSINE [Suspect]
     Active Substance: TRASTUZUMAB EMTANSINE
     Indication: Breast cancer
     Route: 042
     Dates: start: 20240326, end: 20240326
  2. TRASTUZUMAB EMTANSINE [Suspect]
     Active Substance: TRASTUZUMAB EMTANSINE
     Route: 042
     Dates: start: 20240801, end: 20240801
  3. TRASTUZUMAB EMTANSINE [Suspect]
     Active Substance: TRASTUZUMAB EMTANSINE
     Route: 042
     Dates: start: 20240905, end: 20240905
  4. PREDNISONE [Concomitant]
     Active Substance: PREDNISONE
     Indication: Hypopituitarism
     Dosage: ONCE EVERY NIGHT
     Route: 048
     Dates: start: 202011
  5. LACTULOSE [Concomitant]
     Active Substance: LACTULOSE
     Indication: Constipation
     Route: 048
     Dates: start: 2023
  6. POTASSIUM CHLORIDE [Concomitant]
     Active Substance: POTASSIUM CHLORIDE
     Indication: Hypokalaemia
     Route: 048
     Dates: start: 20240718
  7. LEVOTHYROXINE SODIUM [Concomitant]
     Active Substance: LEVOTHYROXINE SODIUM
     Indication: Hypothyroidism
     Route: 048
     Dates: start: 20240207
  8. Aescuven forte ( Mai zhi ling Pian) [Concomitant]
     Indication: Oedema peripheral
     Route: 048
     Dates: start: 20240220
  9. Aescuven forte ( Mai zhi ling Pian) [Concomitant]
     Indication: Xerophthalmia
     Dates: start: 20240717
  10. Aescuven forte ( Mai zhi ling Pian) [Concomitant]
     Indication: Corneal disorder
  11. BOVINE BASIC FIBROBLAST GROWTH FACTOR [Concomitant]
     Indication: Xerophthalmia
     Dates: start: 20240717
  12. BOVINE BASIC FIBROBLAST GROWTH FACTOR [Concomitant]
     Indication: Corneal disorder

REACTIONS (16)
  - Type 2 diabetes mellitus [Recovering/Resolving]
  - Anaemia [Unknown]
  - Hypokalaemia [Unknown]
  - Corneal disorder [Unknown]
  - Asthenia [Unknown]
  - Periorbital oedema [Unknown]
  - Pyrexia [Recovered/Resolved]
  - Memory impairment [Unknown]
  - Apathy [Unknown]
  - Decreased appetite [Unknown]
  - Diabetic ketoacidosis [Unknown]
  - Xerophthalmia [Unknown]
  - Blood triglycerides increased [Unknown]
  - Tri-iodothyronine free decreased [Unknown]
  - Thyroxine free decreased [Unknown]
  - Blood thyroid stimulating hormone increased [Unknown]

NARRATIVE: CASE EVENT DATE: 20240425
